FAERS Safety Report 20918012 (Version 2)
Quarter: 2022Q2

REPORT INFORMATION
  Report Type: Report from Study
  Country: CA (occurrence: CA)
  Receive Date: 20220606
  Receipt Date: 20220618
  Transmission Date: 20220721
  Serious: Yes (Disabling)
  Sender: FDA-Public Use
  Company Number: CA-BRISTOL-MYERS SQUIBB COMPANY-2022-024981

PATIENT
  Age: 51 Year
  Sex: Male
  Weight: 81 kg

DRUGS (7)
  1. OPDIVO [Suspect]
     Active Substance: NIVOLUMAB
     Indication: Peritoneal neoplasm
     Dosage: 31-JAN-2024
     Route: 042
     Dates: start: 20211013
  2. OPDIVO [Suspect]
     Active Substance: NIVOLUMAB
     Indication: Mesothelioma
  3. YERVOY [Suspect]
     Active Substance: IPILIMUMAB
     Indication: Peritoneal neoplasm
     Route: 042
     Dates: start: 20211013
  4. YERVOY [Suspect]
     Active Substance: IPILIMUMAB
     Indication: Mesothelioma
  5. ZOPICLONE [Concomitant]
     Active Substance: ZOPICLONE
     Indication: Insomnia
     Dosage: QHS (EVERY NIGHT AT BEDTIME)
     Route: 048
  6. DEXLANSOPRAZOLE [Concomitant]
     Active Substance: DEXLANSOPRAZOLE
     Indication: Gastrooesophageal reflux disease
     Route: 048
  7. QUETIAPINE [Concomitant]
     Active Substance: QUETIAPINE
     Indication: Insomnia
     Dosage: QHS (EVERY NIGHT AT BEDTIME)
     Route: 048

REACTIONS (18)
  - Blood test abnormal [Unknown]
  - Fatigue [Not Recovered/Not Resolved]
  - Nausea [Not Recovered/Not Resolved]
  - General physical health deterioration [Not Recovered/Not Resolved]
  - Anxiety [Unknown]
  - Fatigue [Unknown]
  - Depression [Unknown]
  - Somnolence [Unknown]
  - Decreased appetite [Unknown]
  - Dyspnoea [Unknown]
  - Euphoric mood [Unknown]
  - Weight decreased [Unknown]
  - Hypoaesthesia [Unknown]
  - Dry mouth [Unknown]
  - Frequent bowel movements [Unknown]
  - Vomiting [Unknown]
  - Abdominal distension [Unknown]
  - Cough [Unknown]

NARRATIVE: CASE EVENT DATE: 20220317
